FAERS Safety Report 25261968 (Version 2)
Quarter: 2025Q2

REPORT INFORMATION
  Report Type: Spontaneous
  Country: US (occurrence: US)
  Receive Date: 20250502
  Receipt Date: 20250502
  Transmission Date: 20250716
  Serious: No
  Sender: ABBVIE
  Company Number: US-ABBVIE-6262547

PATIENT
  Sex: Female

DRUGS (1)
  1. KALETRA [Suspect]
     Active Substance: LOPINAVIR\RITONAVIR
     Indication: HIV infection
     Route: 048

REACTIONS (3)
  - Product dispensing error [Unknown]
  - Drug hypersensitivity [Unknown]
  - Contrast media allergy [Unknown]
